FAERS Safety Report 9669241 (Version 1)
Quarter: 2013Q4

REPORT INFORMATION
  Report Type: Spontaneous
  Country: GB (occurrence: None)
  Receive Date: 20131101
  Receipt Date: 20131101
  Transmission Date: 20140711
  Serious: Yes (Other)
  Sender: FDA-Public Use
  Company Number: 2013P1020483

PATIENT
  Age: 37 Year
  Sex: Male

DRUGS (1)
  1. LITHIUM [Suspect]
     Indication: SCHIZOPHRENIA, PARANOID TYPE

REACTIONS (3)
  - Nephrogenic diabetes insipidus [None]
  - Thyroiditis [None]
  - Hyperparathyroidism primary [None]
